FAERS Safety Report 21075369 (Version 1)
Quarter: 2022Q3

REPORT INFORMATION
  Report Type: Spontaneous
  Country: CN (occurrence: CN)
  Receive Date: 20220713
  Receipt Date: 20220713
  Transmission Date: 20221026
  Serious: Yes (Other)
  Sender: FDA-Public Use
  Company Number: None

PATIENT
  Age: 34 Year
  Sex: Female
  Weight: 52 kg

DRUGS (5)
  1. CYCLOPHOSPHAMIDE [Suspect]
     Active Substance: CYCLOPHOSPHAMIDE
     Indication: Breast cancer female
     Dosage: 800 MG, QD (CYCLOPHOSPHAMIDE 800 MG + SODIUM CHLORIDE 40 ML NS)
     Route: 042
     Dates: start: 20220513, end: 20220513
  2. SODIUM CHLORIDE [Suspect]
     Active Substance: SODIUM CHLORIDE
     Indication: Medication dilution
     Dosage: 40 ML, QD,  (CYCLOPHOSPHAMIDE 800 MG + SODIUM CHLORIDE 40 ML NS)
     Route: 042
     Dates: start: 20220513, end: 20220513
  3. SODIUM CHLORIDE [Suspect]
     Active Substance: SODIUM CHLORIDE
     Dosage: 250 ML, QD (DOCETAXEL INJECTION 100 MG + SODIUM CHLORIDE 250 ML NS)
     Route: 041
     Dates: start: 20220513, end: 20220513
  4. TAXOTERE [Suspect]
     Active Substance: DOCETAXEL
     Indication: Breast cancer female
     Dosage: 100 MG, QD (DOCETAXEL INJECTION 100 MG + SODIUM CHLORIDE 250 ML NS)
     Route: 041
     Dates: start: 20220513, end: 20220513
  5. XIN RUI BAI [Concomitant]
     Indication: Product used for unknown indication
     Dosage: 3 MG
     Route: 058
     Dates: start: 20220514

REACTIONS (2)
  - White blood cell count decreased [Recovered/Resolved]
  - Agranulocytosis [Recovered/Resolved]

NARRATIVE: CASE EVENT DATE: 20220519
